FAERS Safety Report 4684376-6 (Version None)
Quarter: 2005Q2

REPORT INFORMATION
  Report Type: 
  Country: None (occurrence: None)
  Receive Date: 20050531
  Receipt Date: 20040623
  Transmission Date: 20051028
  Serious: Yes (Hospitalization)
  Sender: FDA-Public Use
  Company Number: 200414822US

PATIENT
  Age: 13 Year
  Sex: Female

DRUGS (11)
  1. LOVENOX [Suspect]
     Indication: HAND FRACTURE
     Dosage: 40 MG QD SC
     Route: 058
     Dates: end: 20040610
  2. LOVENOX [Suspect]
     Indication: MULTIPLE FRACTURES
     Dosage: 40 MG QD SC
     Route: 058
     Dates: end: 20040610
  3. LOVENOX [Suspect]
     Indication: POLYTRAUMATISM
     Dosage: 40 MG QD SC
     Route: 058
     Dates: end: 20040610
  4. LOVENOX [Suspect]
     Indication: ROAD TRAFFIC ACCIDENT
     Dosage: 40 MG QD SC
     Route: 058
     Dates: end: 20040610
  5. LOVENOX [Suspect]
     Indication: TIBIA FRACTURE
     Dosage: 40 MG QD SC
     Route: 058
     Dates: end: 20040610
  6. CLAVULANATE POTASSIUM, AMOXICILLIN TRIHYDRATE (AUGMENTIN) [Concomitant]
  7. PREVACID [Concomitant]
  8. MULTI-VITAMIN [Concomitant]
  9. PAXIL [Concomitant]
  10. NAPROXEN SODIUIM (ALEVE) [Concomitant]
  11. BACTRIM [Concomitant]

REACTIONS (2)
  - HAEMATURIA [None]
  - HAEMORRHAGE [None]
